FAERS Safety Report 16963981 (Version 1)
Quarter: 2019Q4

REPORT INFORMATION
  Report Type: Spontaneous
  Country: FR (occurrence: FR)
  Receive Date: 20191026
  Receipt Date: 20191026
  Transmission Date: 20200122
  Serious: Yes (Death, Other)
  Sender: FDA-Public Use
  Company Number: FR-ACCORD-159152

PATIENT
  Age: 65 Year
  Sex: Male
  Weight: 61 kg

DRUGS (4)
  1. XGEVA [Suspect]
     Active Substance: DENOSUMAB
     Indication: ADENOID CYSTIC CARCINOMA
     Route: 058
     Dates: start: 20190613, end: 201908
  2. DOXORUBICIN TEVA [Suspect]
     Active Substance: DOXORUBICIN
     Indication: ADENOID CYSTIC CARCINOMA
     Dosage: 90 MG / TREATMENT
     Route: 041
     Dates: start: 20190522, end: 20190813
  3. CISPLATIN ACCORD [Suspect]
     Active Substance: CISPLATIN
     Indication: ADENOID CYSTIC CARCINOMA
     Dosage: 90MG / TREATMENT
     Route: 041
     Dates: start: 20190612, end: 20190813
  4. ENDOXAN [Suspect]
     Active Substance: CYCLOPHOSPHAMIDE
     Indication: ADENOID CYSTIC CARCINOMA
     Dosage: 90 MG / TREATMENT
     Route: 041
     Dates: start: 20190704, end: 20190813

REACTIONS (4)
  - Dyspnoea [Fatal]
  - Interstitial lung disease [Not Recovered/Not Resolved]
  - Oxygen saturation decreased [Fatal]
  - Off label use [Unknown]

NARRATIVE: CASE EVENT DATE: 201909
